FAERS Safety Report 6973037-6 (Version None)
Quarter: 2010Q3

REPORT INFORMATION
  Report Type: 
  Country: None (occurrence: None)
  Receive Date: 20100909
  Receipt Date: 20100830
  Transmission Date: 20110219
  Serious: Yes (Hospitalization)
  Sender: FDA-Public Use
  Company Number: US-PFIZER INC-2010109822

PATIENT
  Sex: Male
  Weight: 96.145 kg

DRUGS (3)
  1. TOVIAZ [Suspect]
     Indication: HYPERTONIC BLADDER
     Dosage: 8 MG, DAILY
     Route: 048
     Dates: start: 20100808, end: 20100829
  2. MIDODRINE [Concomitant]
     Indication: BLOOD PRESSURE ABNORMAL
     Dosage: UNK
  3. SINEMET [Concomitant]
     Dosage: [CARBIDOPA 25MG]/[ LEVODOPA 100MG]

REACTIONS (1)
  - HYPOTENSION [None]
